FAERS Safety Report 21967572 (Version 1)
Quarter: 2023Q1

REPORT INFORMATION
  Report Type: Spontaneous
  Country: ZA (occurrence: ZA)
  Receive Date: 20230208
  Receipt Date: 20230208
  Transmission Date: 20230418
  Serious: Yes (Other)
  Sender: FDA-Public Use
  Company Number: ZA-PFIZER INC-PV202300023564

PATIENT
  Age: 32 Year
  Sex: Female
  Weight: 67 kg

DRUGS (1)
  1. METHOTREXATE SODIUM [Suspect]
     Active Substance: METHOTREXATE SODIUM
     Dosage: 25 MG, WEEKLY
     Dates: start: 202010

REACTIONS (5)
  - Polyarthritis [Unknown]
  - Treatment failure [Unknown]
  - C-reactive protein increased [Unknown]
  - Vasculitis [Unknown]
  - Urticaria [Unknown]

NARRATIVE: CASE EVENT DATE: 20210101
